FAERS Safety Report 14349265 (Version 4)
Quarter: 2018Q3

REPORT INFORMATION
  Report Type: Report from Study
  Country: None (occurrence: US)
  Receive Date: 20180104
  Receipt Date: 20180906
  Transmission Date: 20181010
  Serious: Yes (Other)
  Sender: FDA-Public Use
  Company Number: US-ABBVIE-18K-163-2209846-00

PATIENT
  Sex: Female
  Weight: 122.58 kg

DRUGS (3)
  1. HUMIRA [Suspect]
     Active Substance: ADALIMUMAB
     Indication: PSORIATIC ARTHROPATHY
     Route: 058
     Dates: start: 20180113
  2. HUMIRA [Suspect]
     Active Substance: ADALIMUMAB
     Indication: ANKYLOSING SPONDYLITIS
  3. HUMIRA [Suspect]
     Active Substance: ADALIMUMAB
     Indication: RHEUMATOID ARTHRITIS
     Dosage: MISSED 2 INJECTION
     Route: 058
     Dates: start: 201705, end: 201712

REACTIONS (31)
  - Bladder cyst [Unknown]
  - Malaise [Unknown]
  - Back pain [Unknown]
  - Gingival abscess [Unknown]
  - Cough [Recovering/Resolving]
  - Osteoporosis [Unknown]
  - Rheumatoid arthritis [Recovered/Resolved]
  - Injury [Unknown]
  - Blindness [Unknown]
  - Eye disorder [Unknown]
  - Colitis ulcerative [Unknown]
  - Cyst rupture [Unknown]
  - Cerebrovascular accident [Unknown]
  - Maculopathy [Unknown]
  - Ankylosing spondylitis [Recovering/Resolving]
  - Abscess oral [Unknown]
  - Migraine [Unknown]
  - Psoriatic arthropathy [Recovering/Resolving]
  - Ileostomy [Unknown]
  - Post-traumatic pain [Unknown]
  - Gastrointestinal oedema [Unknown]
  - Abdominal discomfort [Unknown]
  - Visual impairment [Not Recovered/Not Resolved]
  - Rhinorrhoea [Recovering/Resolving]
  - Neuropathy peripheral [Unknown]
  - Constipation [Unknown]
  - Nephropathy [Unknown]
  - Viral infection [Unknown]
  - Pain [Unknown]
  - Rheumatoid arthritis [Unknown]
  - Abscess jaw [Recovered/Resolved]

NARRATIVE: CASE EVENT DATE: 201712
